FAERS Safety Report 17858332 (Version 2)
Quarter: 2020Q2

REPORT INFORMATION
  Report Type: Report from Study
  Country: None (occurrence: US)
  Receive Date: 20200604
  Receipt Date: 20200605
  Transmission Date: 20200714
  Serious: No
  Sender: FDA-Public Use
  Company Number: US-US WORLDMEDS, LLC-USW201906-001180

PATIENT
  Age: 65 Year
  Sex: Female

DRUGS (2)
  1. APOKYN [Suspect]
     Active Substance: APOMORPHINE HYDROCHLORIDE
     Indication: PRODUCT USED FOR UNKNOWN INDICATION
     Dosage: GREATER THAN 0.6 ML, DOSING MORE THAN 5 TIMES PER DAY AND WITH TOTAL DAILY DOSES GREATER THAN 2 ML.
     Route: 058
  2. APOKYN [Suspect]
     Active Substance: APOMORPHINE HYDROCHLORIDE
     Route: 058
     Dates: start: 201801

REACTIONS (4)
  - Yawning [Unknown]
  - Therapeutic response delayed [Unknown]
  - Injection site bruising [Unknown]
  - Somnolence [Unknown]

NARRATIVE: CASE EVENT DATE: 20190619
